FAERS Safety Report 9739030 (Version 1)
Quarter: 2013Q4

REPORT INFORMATION
  Report Type: Spontaneous
  Country: US (occurrence: US)
  Receive Date: 20131209
  Receipt Date: 20131209
  Transmission Date: 20140711
  Serious: Yes (Other)
  Sender: FDA-Public Use
  Company Number: 2012SP000960

PATIENT
  Age: 63 Year
  Sex: Male

DRUGS (2)
  1. CISPLATIN [Suspect]
     Indication: NEOPLASM MALIGNANT
  2. FLUOROURACIL [Suspect]
     Indication: NEOPLASM MALIGNANT

REACTIONS (2)
  - Neuropathy peripheral [Unknown]
  - Tinnitus [Unknown]
